FAERS Safety Report 5068098-8 (Version None)
Quarter: 2006Q3

REPORT INFORMATION
  Report Type: 
  Country: None (occurrence: None)
  Receive Date: 20060731
  Receipt Date: 20060713
  Transmission Date: 20061208
  Serious: Yes (Death, Hospitalization, Other)
  Sender: FDA-Public Use
  Company Number: US-2006-018826

PATIENT
  Age: 50 Year
  Sex: Female

DRUGS (1)
  1. BETASERON [Suspect]
     Indication: MULTIPLE SCLEROSIS
     Dosage: SUBCUTANEOUS
     Route: 058
     Dates: start: 20050512, end: 20060518

REACTIONS (4)
  - CARDIAC ARREST [None]
  - GALLBLADDER OBSTRUCTION [None]
  - HIP FRACTURE [None]
  - POST PROCEDURAL COMPLICATION [None]
